FAERS Safety Report 5277912-2 (Version None)
Quarter: 2007Q1

REPORT INFORMATION
  Report Type: 
  Country: None (occurrence: None)
  Receive Date: 20070327
  Receipt Date: 20070315
  Transmission Date: 20070707
  Serious: Yes (Other)
  Sender: FDA-Public Use
  Company Number: US-PFIZER INC-2007021781

PATIENT
  Sex: Male
  Weight: 104.3 kg

DRUGS (9)
  1. VIAGRA [Suspect]
     Indication: ERECTILE DYSFUNCTION
  2. EFFEXOR [Concomitant]
  3. XANAX [Concomitant]
  4. PREDNISONE [Concomitant]
  5. ALL OTHER THERAPEUTIC PRODUCTS [Concomitant]
  6. MORPHINE SULFATE [Concomitant]
  7. ZANAFLEX [Concomitant]
  8. MIRAPEX [Concomitant]
  9. CLOBETASOL PROPIONATE [Concomitant]

REACTIONS (4)
  - BLINDNESS [None]
  - DEAFNESS UNILATERAL [None]
  - MULTIPLE SCLEROSIS [None]
  - SURGERY [None]
